FAERS Safety Report 9967723 (Version 2)
Quarter: 2014Q1

REPORT INFORMATION
  Report Type: Report from Study
  Country: US (occurrence: US)
  Receive Date: 20140306
  Receipt Date: 20140313
  Transmission Date: 20141002
  Serious: Yes (Other)
  Sender: FDA-Public Use
  Company Number: US-ROCHE-1343137

PATIENT
  Sex: Female

DRUGS (10)
  1. LUCENTIS [Suspect]
     Indication: CYSTOID MACULAR OEDEMA
     Route: 050
  2. LUCENTIS [Suspect]
     Indication: RETINAL VEIN OCCLUSION
  3. LUCENTIS [Suspect]
     Indication: RETINAL VEIN OCCLUSION
  4. LUCENTIS [Suspect]
     Indication: RETINAL OEDEMA
  5. LUCENTIS [Suspect]
     Indication: RETINAL VEIN OCCLUSION
  6. AVASTIN [Suspect]
     Indication: CYSTOID MACULAR OEDEMA
     Dosage: OS
     Route: 050
     Dates: start: 20130404, end: 20130404
  7. AVASTIN [Suspect]
     Indication: RETINAL VEIN OCCLUSION
     Dosage: OS
     Route: 050
     Dates: start: 20130206, end: 20130206
  8. AVASTIN [Suspect]
     Dosage: OS
     Route: 050
     Dates: start: 20130807, end: 20130807
  9. AVASTIN [Suspect]
     Dosage: LEFT EYE
     Route: 050
     Dates: start: 20120119, end: 20131017
  10. JANUVIA [Concomitant]

REACTIONS (12)
  - Cystoid macular oedema [Unknown]
  - Herpes zoster [Unknown]
  - Photophobia [Unknown]
  - Vitreous floaters [Unknown]
  - Visual acuity reduced [Unknown]
  - Hypoacusis [Unknown]
  - Cataract nuclear [Unknown]
  - Retinal vein occlusion [Unknown]
  - Metamorphopsia [Unknown]
  - Vision blurred [Unknown]
  - Off label use [Unknown]
  - Vitreous detachment [Unknown]
